FAERS Safety Report 6444647-X (Version None)
Quarter: 2009Q4

REPORT INFORMATION
  Report Type: 
  Country: None (occurrence: None)
  Receive Date: 20091118
  Receipt Date: 20091111
  Transmission Date: 20100525
  Serious: Yes (Other)
  Sender: FDA-Public Use
  Company Number: B0591875A

PATIENT
  Age: 17 Year
  Sex: Female

DRUGS (3)
  1. ALLI [Suspect]
     Dosage: 60MG PER DAY
     Route: 048
  2. VANIQA [Concomitant]
     Route: 065
  3. MOTILIUM [Concomitant]
     Route: 065

REACTIONS (3)
  - GINGIVAL BLEEDING [None]
  - GINGIVAL PAIN [None]
  - GINGIVAL SWELLING [None]
